FAERS Safety Report 4464262-7 (Version None)
Quarter: 2004Q4

REPORT INFORMATION
  Report Type: 
  Country: None (occurrence: None)
  Receive Date: 20041001
  Receipt Date: 20040913
  Transmission Date: 20050328
  Serious: Yes (Other)
  Sender: FDA-Public Use
  Company Number: PHBS2004CA12158

PATIENT

DRUGS (1)
  1. ELIDEL [Suspect]
     Indication: VITILIGO
     Route: 061

REACTIONS (1)
  - LYMPHOMA [None]
